FAERS Safety Report 4889608-7 (Version None)
Quarter: 2006Q1

REPORT INFORMATION
  Report Type: 
  Country: None (occurrence: None)
  Receive Date: 20060120
  Receipt Date: 20060120
  Transmission Date: 20060701
  Serious: Yes (Death)
  Sender: FDA-Public Use
  Company Number: None

PATIENT
  Sex: Male
  Weight: 69.1 kg

DRUGS (6)
  1. INTRON A [Suspect]
     Indication: SMALL CELL LUNG CANCER STAGE UNSPECIFIED
     Dosage: SEE IMAGE
     Route: 058
     Dates: start: 20051122, end: 20060117
  2. INTRON A [Suspect]
     Indication: SMALL CELL LUNG CANCER STAGE UNSPECIFIED
     Dosage: SEE IMAGE
     Route: 058
     Dates: start: 20060117
  3. ISOTRETINOIN [Suspect]
     Dosage: SEE IMAGE
     Route: 048
     Dates: start: 20051122, end: 20060117
  4. ISOTRETINOIN [Suspect]
     Dosage: SEE IMAGE
     Route: 048
     Dates: start: 20060117
  5. TAXOL [Suspect]
     Dosage: SEE IMAGE
     Dates: start: 20051125, end: 20060117
  6. TAXOL [Suspect]
     Dosage: SEE IMAGE
     Dates: start: 20060117

REACTIONS (3)
  - DISEASE PROGRESSION [None]
  - MALAISE [None]
  - MYOCARDIAL INFARCTION [None]
